FAERS Safety Report 11736275 (Version 1)
Quarter: 2015Q4

REPORT INFORMATION
  Report Type: Spontaneous
  Country: US (occurrence: US)
  Receive Date: 20151113
  Receipt Date: 20151113
  Transmission Date: 20160304
  Serious: No
  Sender: FDA-Public Use
  Company Number: US-JNJFOC-20151013221

PATIENT
  Sex: Male

DRUGS (1)
  1. SIMPONI [Suspect]
     Active Substance: GOLIMUMAB
     Indication: ANKYLOSING SPONDYLITIS
     Dosage: 0.5 ML
     Route: 058
     Dates: start: 20151016

REACTIONS (2)
  - Drug dose omission [Unknown]
  - Product contamination [Unknown]

NARRATIVE: CASE EVENT DATE: 20151016
